FAERS Safety Report 10614836 (Version 1)
Quarter: 2014Q4

REPORT INFORMATION
  Report Type: Spontaneous
  Country: CA (occurrence: CA)
  Receive Date: 20141201
  Receipt Date: 20141201
  Transmission Date: 20150529
  Serious: Yes (Hospitalization, Other)
  Sender: FDA-Public Use
  Company Number: CA-ROCHE-1496951

PATIENT
  Sex: Male

DRUGS (12)
  1. RITUXAN [Suspect]
     Active Substance: RITUXIMAB
     Indication: CHRONIC LYMPHOCYTIC LEUKAEMIA
     Dosage: FLUDARABINE AND RITUXIMAB COMBINATION
     Route: 065
     Dates: start: 20100104
  2. RITUXAN [Suspect]
     Active Substance: RITUXIMAB
     Dosage: GDP-R COMBINATION
     Route: 065
     Dates: start: 201011
  3. FLUDARABINE [Suspect]
     Active Substance: FLUDARABINE PHOSPHATE
     Indication: CHRONIC LYMPHOCYTIC LEUKAEMIA
     Route: 065
     Dates: start: 20100104
  4. CISPLATIN. [Suspect]
     Active Substance: CISPLATIN
     Indication: CHRONIC LYMPHOCYTIC LEUKAEMIA
     Dosage: GDP-R COMBINATION
     Route: 065
     Dates: start: 201011
  5. RITUXAN [Suspect]
     Active Substance: RITUXIMAB
     Dosage: CVP-R COMBINATION
     Route: 065
     Dates: start: 201002, end: 201007
  6. VINCRISTINE [Suspect]
     Active Substance: VINCRISTINE
     Indication: CHRONIC LYMPHOCYTIC LEUKAEMIA
     Route: 065
     Dates: start: 201002, end: 201007
  7. RITUXAN [Suspect]
     Active Substance: RITUXIMAB
     Dosage: BENDAMUSTINE/RITUXIMAB COMBINATION
     Route: 065
     Dates: start: 20140305
  8. DEXAMETHASONE. [Suspect]
     Active Substance: DEXAMETHASONE
     Indication: CHRONIC LYMPHOCYTIC LEUKAEMIA
     Dosage: GDP-R COMBINATION
     Route: 065
     Dates: start: 201011
  9. CYCLOPHOSPHAMIDE. [Suspect]
     Active Substance: CYCLOPHOSPHAMIDE
     Indication: CHRONIC LYMPHOCYTIC LEUKAEMIA
     Dosage: CVP-R COMBINATION
     Route: 065
     Dates: start: 201002, end: 201007
  10. GEMCITABINE [Suspect]
     Active Substance: GEMCITABINE\GEMCITABINE HYDROCHLORIDE
     Indication: CHRONIC LYMPHOCYTIC LEUKAEMIA
     Dosage: GDP-R COMBINATION
     Route: 065
     Dates: start: 201011
  11. PREDNISONE. [Suspect]
     Active Substance: PREDNISONE
     Indication: CHRONIC LYMPHOCYTIC LEUKAEMIA
     Dosage: CVP-R COMBINATION
     Route: 065
     Dates: start: 201002, end: 201007
  12. BENDAMUSTINE [Suspect]
     Active Substance: BENDAMUSTINE
     Indication: CHRONIC LYMPHOCYTIC LEUKAEMIA
     Dosage: BENDAMUSTINE/RITUXIMAB COMBINATION
     Route: 065
     Dates: start: 20140305

REACTIONS (7)
  - Malignant neoplasm progression [Unknown]
  - Drug ineffective [Unknown]
  - Neuropathy peripheral [Unknown]
  - Bacteraemia [Unknown]
  - Cytopenia [Unknown]
  - Febrile neutropenia [Unknown]
  - Haemolysis [Unknown]
